FAERS Safety Report 7642448 (Version 3)
Quarter: 2013Q1

REPORT INFORMATION
  Report Type: Spontaneous
  Country: US (occurrence: US)
  Receive Date: 20101027
  Receipt Date: 20130315
  Transmission Date: 20140127
  Serious: Yes (Hospitalization, Other)
  Sender: FDA-Public Use
  Company Number: US-BAYER-201038258NA

PATIENT
  Age: 19 Year
  Sex: Female
  Weight: 63.49 kg

DRUGS (7)
  1. YAZ [Suspect]
     Indication: PREMENSTRUAL SYNDROME
     Dosage: UNK
     Route: 048
     Dates: start: 200707
  2. YAZ [Suspect]
     Indication: MENSTRUAL CYCLE MANAGEMENT
  3. YASMIN [Suspect]
     Indication: PREMENSTRUAL SYNDROME
     Dosage: UNK
     Route: 048
     Dates: start: 200510, end: 200603
  4. YASMIN [Suspect]
     Indication: MENSTRUAL CYCLE MANAGEMENT
     Dosage: UNK
     Dates: start: 200610, end: 200706
  5. YASMIN [Suspect]
     Indication: PREMENSTRUAL SYNDROME
     Dosage: UNK
     Dates: start: 200709, end: 200806
  6. OCELLA [Suspect]
     Indication: PREMENSTRUAL SYNDROME
     Dosage: UNK
     Dates: start: 200807, end: 200910
  7. OCELLA [Suspect]
     Indication: MENSTRUAL CYCLE MANAGEMENT

REACTIONS (6)
  - Deep vein thrombosis [Unknown]
  - Pain [None]
  - Thrombosis [None]
  - Lower extremity mass [None]
  - Abasia [None]
  - Off label use [None]
